FAERS Safety Report 6536191-6 (Version None)
Quarter: 2010Q1

REPORT INFORMATION
  Report Type: 
  Country: None (occurrence: None)
  Receive Date: 20100113
  Receipt Date: 20100106
  Transmission Date: 20100710
  Serious: No
  Sender: FDA-Public Use
  Company Number: US-B.I. PHARMACEUTICALS,INC./RIDGEFIELD-2009-BP-13712BP

PATIENT
  Sex: Female

DRUGS (11)
  1. SPIRIVA [Suspect]
     Indication: CHRONIC OBSTRUCTIVE PULMONARY DISEASE
     Dosage: 18 MCG
     Route: 055
     Dates: start: 20080101
  2. SPIRIVA [Suspect]
     Indication: DYSPNOEA
  3. DIOVAN [Concomitant]
  4. CELEBREX [Concomitant]
  5. ZOLOFT [Concomitant]
  6. LORAZEPAM [Concomitant]
  7. PREVACID [Concomitant]
  8. TRAZODONE HCL [Concomitant]
  9. FIORICET [Concomitant]
  10. VICODIN [Concomitant]
  11. FLEXERIL [Concomitant]

REACTIONS (1)
  - DYSPNOEA [None]
